FAERS Safety Report 14999641 (Version 1)
Quarter: 2018Q2

REPORT INFORMATION
  Report Type: Spontaneous
  Country: US (occurrence: US)
  Receive Date: 20180520
  Receipt Date: 20180520
  Transmission Date: 20180711
  Serious: Yes (Hospitalization)
  Sender: FDA-Public Use
  Company Number: None

PATIENT
  Age: 74 Year
  Sex: Male
  Weight: 91 kg

DRUGS (2)
  1. ALPROSTADIL. [Suspect]
     Active Substance: ALPROSTADIL
     Indication: ERECTILE DYSFUNCTION
     Dates: start: 20170801, end: 20171002
  2. PAPAVERINE [Suspect]
     Active Substance: PAPAVERINE
     Dates: start: 20170801, end: 20171002

REACTIONS (2)
  - Tachycardia [None]
  - Priapism [None]

NARRATIVE: CASE EVENT DATE: 20171006
